FAERS Safety Report 4816778-9 (Version None)
Quarter: 2005Q4

REPORT INFORMATION
  Report Type: 
  Country: None (occurrence: None)
  Receive Date: 20051031
  Receipt Date: 20051031
  Transmission Date: 20060501
  Serious: Yes (Other)
  Sender: FDA-Public Use
  Company Number: None

PATIENT
  Sex: Female
  Weight: 48.0813 kg

DRUGS (4)
  1. REMICADE [Suspect]
     Indication: INFLAMMATORY BOWEL DISEASE
     Dosage: EVERY 5 WEEKS   IV DRIP
     Route: 041
     Dates: start: 20050101, end: 20051028
  2. ASACOL [Concomitant]
  3. IMURAN [Concomitant]
  4. NU-LEV [Concomitant]

REACTIONS (1)
  - ACNE [None]
